FAERS Safety Report 6441448-3 (Version None)
Quarter: 2009Q4

REPORT INFORMATION
  Report Type: 
  Country: None (occurrence: None)
  Receive Date: 20091116
  Receipt Date: 20091105
  Transmission Date: 20100525
  Serious: Yes (Hospitalization)
  Sender: FDA-Public Use
  Company Number: A0813398A

PATIENT
  Age: 53 Year
  Sex: Female
  Weight: 70.5 kg

DRUGS (7)
  1. ARIXTRA [Suspect]
     Indication: DRUG USE FOR UNKNOWN INDICATION
     Dosage: 2.5MG PER DAY
     Route: 058
     Dates: start: 20090814, end: 20090815
  2. METOPROLOL [Concomitant]
  3. GEMFIBROZIL [Concomitant]
  4. PLENDIL [Concomitant]
  5. METFORMIN HCL [Concomitant]
  6. DIOVAN [Concomitant]
  7. NAPROSYN [Concomitant]

REACTIONS (3)
  - HAEMATOCRIT DECREASED [None]
  - HEPARIN-INDUCED THROMBOCYTOPENIA [None]
  - PLATELET COUNT DECREASED [None]
